FAERS Safety Report 19971456 (Version 3)
Quarter: 2024Q1

REPORT INFORMATION
  Report Type: Spontaneous
  Country: FR (occurrence: FR)
  Receive Date: 20211020
  Receipt Date: 20240301
  Transmission Date: 20240409
  Serious: Yes (Other)
  Sender: FDA-Public Use
  Company Number: FR-ROCHE-2939186

PATIENT
  Age: 46 Year
  Sex: Male
  Weight: 96 kg

DRUGS (5)
  1. TACROLIMUS [Suspect]
     Active Substance: TACROLIMUS
     Indication: Transplant
     Route: 048
     Dates: start: 20210812, end: 20210916
  2. VALGANCICLOVIR [Suspect]
     Active Substance: VALGANCICLOVIR
     Indication: Antiviral prophylaxis
     Dosage: 450 MG*1X/2JR
     Route: 065
     Dates: start: 20210817, end: 20210817
  3. BACTRIM [Suspect]
     Active Substance: SULFAMETHOXAZOLE\TRIMETHOPRIM
     Indication: Bacterial infection
     Route: 042
     Dates: start: 20210909, end: 20210919
  4. CELLCEPT [Suspect]
     Active Substance: MYCOPHENOLATE MOFETIL
     Indication: Liver transplant
     Route: 042
     Dates: start: 20210814, end: 20210913
  5. NOXAFIL [Suspect]
     Active Substance: POSACONAZOLE
     Indication: Immunosuppression
     Route: 048
     Dates: start: 20210812, end: 20210915

REACTIONS (1)
  - Pancytopenia [Recovering/Resolving]

NARRATIVE: CASE EVENT DATE: 20210913
